FAERS Safety Report 23338042 (Version 1)
Quarter: 2023Q4

REPORT INFORMATION
  Report Type: Spontaneous
  Country: US (occurrence: None)
  Receive Date: 20231222
  Receipt Date: 20231222
  Transmission Date: 20240110
  Serious: Yes (Other)
  Sender: FDA-Public Use
  Company Number: None

PATIENT
  Age: 37 Year
  Sex: Male
  Weight: 49.5 kg

DRUGS (2)
  1. QUETIAPINE [Suspect]
     Active Substance: QUETIAPINE
     Indication: Sleep disorder
     Route: 048
     Dates: start: 20230512, end: 20230514
  2. OMEPRAZOLE [Concomitant]
     Active Substance: OMEPRAZOLE

REACTIONS (20)
  - Somnolence [None]
  - Gait disturbance [None]
  - Eating disorder [None]
  - Defaecation disorder [None]
  - Cognitive disorder [None]
  - Irritability [None]
  - Somnolence [None]
  - Parosmia [None]
  - Paranoia [None]
  - Intrusive thoughts [None]
  - Suicidal ideation [None]
  - Panic attack [None]
  - Self-injurious ideation [None]
  - Psychotic disorder [None]
  - Decreased appetite [None]
  - Constipation [None]
  - Hypohidrosis [None]
  - Chest pain [None]
  - Drooling [None]
  - Pollakiuria [None]

NARRATIVE: CASE EVENT DATE: 20230512
